FAERS Safety Report 9983519 (Version 2)
Quarter: 2014Q2

REPORT INFORMATION
  Report Type: Spontaneous
  Country: US (occurrence: US)
  Receive Date: 20140307
  Receipt Date: 20140416
  Transmission Date: 20141212
  Serious: Yes (Other)
  Sender: FDA-Public Use
  Company Number: US-FRI-1000054614

PATIENT
  Sex: Female
  Weight: 45 kg

DRUGS (7)
  1. SAVELLA [Suspect]
     Indication: RHEUMATOID ARTHRITIS
     Dosage: 50MG
     Route: 048
     Dates: start: 20131205, end: 20131223
  2. OPANA ER [Concomitant]
     Indication: RHEUMATOID ARTHRITIS
     Dosage: 20MG
  3. OPANA ER [Concomitant]
     Indication: PAIN
  4. OPANA [Concomitant]
     Indication: PAIN
     Dosage: 20MG
  5. VITAMIN (NOS) [Concomitant]
  6. DULCOLAX [Concomitant]
  7. LYRICA [Concomitant]
     Indication: TRIGEMINAL NEURALGIA
     Dosage: DAILY

REACTIONS (6)
  - Tooth abscess [Recovered/Resolved]
  - Device failure [Not Recovered/Not Resolved]
  - Off label use [Recovered/Resolved]
  - Toothache [Not Recovered/Not Resolved]
  - Gingivitis [Recovered/Resolved]
  - Therapeutic response changed [Unknown]
